FAERS Safety Report 15880695 (Version 5)
Quarter: 2019Q2

REPORT INFORMATION
  Report Type: Report from Study
  Country: US (occurrence: US)
  Receive Date: 20190128
  Receipt Date: 20190401
  Transmission Date: 20190711
  Serious: Yes (Hospitalization, Other)
  Sender: FDA-Public Use
  Company Number: US-PFIZER INC-2018514791

PATIENT
  Age: 33 Year
  Sex: Female

DRUGS (3)
  1. IBRANCE [Suspect]
     Active Substance: PALBOCICLIB
     Indication: BREAST CANCER FEMALE
     Dosage: 75 MG, CYCLIC (DAILY 21 DAYS ON AND 7 DAYS OFF/21 DAYS OF 28 DAY CYCLE)
     Route: 048
     Dates: start: 20181126, end: 20190116
  2. IBRANCE [Suspect]
     Active Substance: PALBOCICLIB
     Dosage: 75 MG, CYCLIC(DAILY 21 DAYS ON AND 7 DAYS OFF)
     Route: 048
     Dates: start: 20190131
  3. LETROZOLE. [Concomitant]
     Active Substance: LETROZOLE
     Dosage: UNK

REACTIONS (21)
  - Intestinal prolapse [Unknown]
  - Chest pain [Recovered/Resolved]
  - Fatigue [Recovered/Resolved]
  - Haemoptysis [Recovered/Resolved]
  - Leukopenia [Unknown]
  - Neoplasm progression [Unknown]
  - Chills [Recovered/Resolved]
  - Musculoskeletal chest pain [Unknown]
  - Product use issue [Unknown]
  - Thrombocytopenia [Unknown]
  - Nasopharyngitis [Unknown]
  - Constipation [Unknown]
  - Pain [Unknown]
  - Rhinorrhoea [Unknown]
  - Heart rate irregular [Recovered/Resolved]
  - Epistaxis [Recovered/Resolved]
  - Alopecia [Not Recovered/Not Resolved]
  - Mood altered [Unknown]
  - Product dose omission [Unknown]
  - Hot flush [Not Recovered/Not Resolved]
  - Hyperhidrosis [Recovered/Resolved]

NARRATIVE: CASE EVENT DATE: 2018
